FAERS Safety Report 13272969 (Version 3)
Quarter: 2017Q1

REPORT INFORMATION
  Report Type: Report from Study
  Country: JP (occurrence: JP)
  Receive Date: 20170227
  Receipt Date: 20170310
  Transmission Date: 20170428
  Serious: No
  Sender: FDA-Public Use
  Company Number: JP-VIFOR (INTERNATIONAL) INC.-VIT-2017-01624

PATIENT
  Age: 57 Year
  Sex: Male
  Weight: 58.1 kg

DRUGS (16)
  1. METHYCOBAL [Concomitant]
     Active Substance: METHYLCOBALAMIN
     Route: 048
  2. ALFAROL [Concomitant]
     Active Substance: ALFACALCIDOL
     Route: 048
     Dates: start: 20160818
  3. RIZABEN [Concomitant]
     Active Substance: TRANILAST
     Route: 048
  4. REGPARA [Concomitant]
     Active Substance: CINACALCET HYDROCHLORIDE
     Route: 048
  5. ADALAT CC [Concomitant]
     Active Substance: NIFEDIPINE
     Route: 048
  6. NESP [Concomitant]
     Active Substance: DARBEPOETIN ALFA
     Dates: start: 20161110
  7. OXAROL [Concomitant]
     Active Substance: MAXACALCITOL
  8. REBAMIPIDE [Concomitant]
     Active Substance: REBAMIPIDE
     Indication: PROPHYLAXIS
     Route: 048
     Dates: start: 20160809
  9. VELPHORO [Suspect]
     Active Substance: FERRIC OXYHYDROXIDE
     Indication: HYPERPHOSPHATAEMIA
     Route: 048
     Dates: start: 20160712
  10. NEXIUM [Concomitant]
     Active Substance: ESOMEPRAZOLE MAGNESIUM
     Route: 048
  11. AMIYU [Concomitant]
     Route: 048
  12. RENAGEL [Concomitant]
     Active Substance: SEVELAMER HYDROCHLORIDE
     Indication: HYPERPHOSPHATAEMIA
     Route: 048
  13. FOSRENOL [Concomitant]
     Active Substance: LANTHANUM CARBONATE
     Indication: HYPERPHOSPHATAEMIA
     Route: 048
  14. THYRADIN-S [Concomitant]
     Active Substance: LEVOTHYROXINE
     Route: 048
  15. DIOVAN [Concomitant]
     Active Substance: VALSARTAN
     Route: 048
  16. NESP [Concomitant]
     Active Substance: DARBEPOETIN ALFA
     Dates: end: 20161108

REACTIONS (2)
  - Blood parathyroid hormone increased [Unknown]
  - C-reactive protein increased [Recovered/Resolved]

NARRATIVE: CASE EVENT DATE: 20160818
